FAERS Safety Report 12198965 (Version 1)
Quarter: 2016Q1

REPORT INFORMATION
  Report Type: Spontaneous
  Country: US (occurrence: None)
  Receive Date: 20160321
  Receipt Date: 20160321
  Transmission Date: 20160526
  Serious: No
  Sender: FDA-Public Use
  Company Number: None

PATIENT
  Age: 76 Year
  Sex: Male
  Weight: 79.83 kg

DRUGS (1)
  1. LEVULAN KERASTICK [Suspect]
     Active Substance: AMINOLEVULINIC ACID HYDROCHLORIDE
     Indication: PHOTOTHERAPY
     Dates: start: 20160315, end: 20160315

REACTIONS (4)
  - Application site pain [None]
  - Application site vesicles [None]
  - Product label issue [None]
  - Insomnia [None]

NARRATIVE: CASE EVENT DATE: 20160315
